FAERS Safety Report 10013004 (Version 1)
Quarter: 2014Q1

REPORT INFORMATION
  Report Type: Spontaneous
  Country: US (occurrence: US)
  Receive Date: 20140314
  Receipt Date: 20140314
  Transmission Date: 20141002
  Serious: Yes (Other)
  Sender: FDA-Public Use
  Company Number: US-PFIZER INC-2014071294

PATIENT
  Age: 36 Year
  Sex: Male

DRUGS (4)
  1. LYRICA [Suspect]
     Dosage: UNK
  2. CYCLOSPORINE [Suspect]
     Dosage: UNK
  3. H.P ACTHAR GEL [Suspect]
     Indication: NEPHRITIC SYNDROME
     Dosage: UNK
     Dates: start: 20131116
  4. H.P ACTHAR GEL [Suspect]
     Indication: GLOMERULONEPHRITIS CHRONIC

REACTIONS (3)
  - Fluid retention [Recovered/Resolved]
  - Dyspnoea [Recovered/Resolved]
  - Muscle twitching [Recovered/Resolved]
